FAERS Safety Report 4675125-6 (Version None)
Quarter: 2005Q2

REPORT INFORMATION
  Report Type: 
  Country: None (occurrence: None)
  Receive Date: 20050526
  Receipt Date: 20050303
  Transmission Date: 20051028
  Serious: Yes (Hospitalization, Disabling, Other)
  Sender: FDA-Public Use
  Company Number: US-MERCK-0503USA00830

PATIENT
  Age: 60 Year
  Sex: Female
  Weight: 100 kg

DRUGS (10)
  1. VIOXX [Suspect]
     Indication: OSTEOARTHRITIS
     Route: 048
     Dates: start: 19990802, end: 20041005
  2. VIOXX [Suspect]
     Route: 048
     Dates: start: 19990802, end: 20041005
  3. NEXIUM [Concomitant]
     Route: 048
  4. EFFEXOR XR [Concomitant]
     Route: 048
  5. ZESTORETIC [Concomitant]
     Route: 048
  6. PLAQUENIL [Concomitant]
     Route: 048
  7. PREDNISONE [Concomitant]
     Route: 048
     Dates: start: 20040101
  8. PREDNISONE [Concomitant]
     Route: 048
     Dates: start: 20040201
  9. PREDNISONE [Concomitant]
     Route: 048
     Dates: start: 20040401, end: 20040401
  10. PREDNISONE [Concomitant]
     Route: 048
     Dates: start: 20040301

REACTIONS (25)
  - ABDOMINAL PAIN [None]
  - ABDOMINAL PAIN UPPER [None]
  - ADJUSTMENT DISORDER [None]
  - ADRENAL ADENOMA [None]
  - ANXIETY [None]
  - ARTHRALGIA [None]
  - BACK DISORDER [None]
  - BILIARY TRACT DISORDER [None]
  - CERVICAL VERTEBRA INJURY [None]
  - CORONARY ARTERY OCCLUSION [None]
  - DEPRESSED MOOD [None]
  - DRUG INEFFECTIVE [None]
  - EXOSTOSIS [None]
  - FIBROMYALGIA [None]
  - GASTROOESOPHAGEAL REFLUX DISEASE [None]
  - HEADACHE [None]
  - HYPERCHOLESTEROLAEMIA [None]
  - HYPOAESTHESIA [None]
  - INSOMNIA [None]
  - MYOCARDIAL INFARCTION [None]
  - NERVE COMPRESSION [None]
  - PANIC DISORDER [None]
  - POLYMYALGIA RHEUMATICA [None]
  - ROTATOR CUFF SYNDROME [None]
  - SHOULDER PAIN [None]
